FAERS Safety Report 24672109 (Version 1)
Quarter: 2024Q4

REPORT INFORMATION
  Report Type: Spontaneous
  Country: US (occurrence: US)
  Receive Date: 20241127
  Receipt Date: 20241127
  Transmission Date: 20250114
  Serious: Yes (Other)
  Sender: BAUSCH AND LOMB
  Company Number: US-BAUSCH-BL-2024-017074

PATIENT

DRUGS (1)
  1. LORAZEPAM [Suspect]
     Active Substance: LORAZEPAM
     Indication: Product used for unknown indication
     Route: 065

REACTIONS (3)
  - Drug dependence [Not Recovered/Not Resolved]
  - Stress [Unknown]
  - Insomnia [Unknown]

NARRATIVE: CASE EVENT DATE: 20240101
